FAERS Safety Report 9889685 (Version 2)
Quarter: 2014Q1

REPORT INFORMATION
  Report Type: Spontaneous
  Country: US (occurrence: US)
  Receive Date: 20140211
  Receipt Date: 20140324
  Transmission Date: 20141002
  Serious: No
  Sender: FDA-Public Use
  Company Number: US-PFIZER INC-2014033410

PATIENT
  Sex: Female

DRUGS (2)
  1. ADVIL PM [Suspect]
     Dosage: 1 TABLET, DAILY
     Route: 048
     Dates: end: 2013
  2. ADVIL PM [Suspect]
     Dosage: TWO TABLETS, DAILY AT NIGHT
     Route: 048
     Dates: start: 2013

REACTIONS (5)
  - Pruritus [Unknown]
  - Insomnia [Unknown]
  - Skin lesion [Unknown]
  - Acne [Unknown]
  - Acarodermatitis [Unknown]
